FAERS Safety Report 19954163 (Version 1)
Quarter: 2021Q4

REPORT INFORMATION
  Report Type: Spontaneous
  Country: FR (occurrence: FR)
  Receive Date: 20211013
  Receipt Date: 20211013
  Transmission Date: 20220303
  Serious: Yes (Other)
  Sender: FDA-Public Use
  Company Number: 2021A766494

PATIENT
  Sex: Female

DRUGS (1)
  1. IRESSA [Suspect]
     Active Substance: GEFITINIB
     Indication: Bronchial carcinoma
     Dosage: UNSPECIFIED DOSE AND FREQUENCY
     Route: 048
     Dates: start: 2007

REACTIONS (1)
  - Malignant neoplasm progression [Unknown]
